FAERS Safety Report 5441874-5 (Version None)
Quarter: 2007Q3

REPORT INFORMATION
  Report Type: 
  Country: None (occurrence: None)
  Receive Date: 20070831
  Receipt Date: 20070831
  Transmission Date: 20080115
  Serious: Yes (Hospitalization)
  Sender: FDA-Public Use
  Company Number: None

PATIENT
  Sex: Female
  Weight: 51.2 kg

DRUGS (3)
  1. CARBOPLATIN [Suspect]
     Dosage: 536 MG
  2. TAXOTERE [Suspect]
     Dosage: 110 MG
  3. TAXOL [Suspect]
     Dosage: 88 MG

REACTIONS (3)
  - HAEMOGLOBIN DECREASED [None]
  - NEUTROPHIL COUNT DECREASED [None]
  - PYREXIA [None]
